FAERS Safety Report 5249884-8 (Version None)
Quarter: 2007Q1

REPORT INFORMATION
  Report Type: 
  Country: None (occurrence: None)
  Receive Date: 20070223
  Receipt Date: 20070213
  Transmission Date: 20070707
  Serious: Yes (Death)
  Sender: FDA-Public Use
  Company Number: 2007BL000454

PATIENT
  Age: 18 Year
  Sex: Male

DRUGS (15)
  1. PREDNISOLONE SODIUM PHOSPHATE [Suspect]
     Indication: ACUTE LYMPHOCYTIC LEUKAEMIA
     Dosage: 40 MILLIGRAMS PER SQUARE METER;WEEKLY;ORAL
     Route: 048
     Dates: start: 20061101, end: 20061201
  2. METHOTREXATE [Suspect]
     Indication: ACUTE LYMPHOCYTIC LEUKAEMIA
     Dosage: UNKNOWN;WEEKLY;INTRATHECAL
     Route: 037
     Dates: start: 20061101, end: 20061201
  3. VINCRISTINE [Suspect]
     Dosage: UNKNOWN;WEEKLY;INTRAVENOUS
     Route: 042
  4. INDUCTION PROTOCOL (NO PREF. NAME) [Suspect]
     Indication: ACUTE LYMPHOCYTIC LEUKAEMIA
     Dates: start: 20030101
  5. ACYCLOVIR [Concomitant]
  6. CITALOPRAM HYDROBROMIDE [Concomitant]
  7. FLUCONAZOLE [Concomitant]
  8. GABAPENTIN [Concomitant]
  9. KETOVITE [Concomitant]
  10. LEVEMIR [Concomitant]
  11. OMEPRAZOLE [Concomitant]
  12. PREDNISOLONE [Concomitant]
  13. VITAMIN K [Concomitant]
  14. ACIDOPHILUS [Concomitant]
  15. MAGNASORB [Concomitant]

REACTIONS (2)
  - CARDIAC ARREST [None]
  - NEUTROPENIC SEPSIS [None]
